FAERS Safety Report 12384772 (Version 1)
Quarter: 2016Q2

REPORT INFORMATION
  Report Type: Spontaneous
  Country: US (occurrence: US)
  Receive Date: 20160519
  Receipt Date: 20160519
  Transmission Date: 20160815
  Serious: No
  Sender: FDA-Public Use
  Company Number: US-TEVA-583057USA

PATIENT
  Age: 88 Year
  Sex: Female

DRUGS (2)
  1. TORASEMIDE [Suspect]
     Active Substance: TORSEMIDE
     Indication: OEDEMA
  2. TORASEMIDE [Suspect]
     Active Substance: TORSEMIDE

REACTIONS (1)
  - Dyspepsia [Recovering/Resolving]
